FAERS Safety Report 7693863-8 (Version None)
Quarter: 2011Q3

REPORT INFORMATION
  Report Type: 
  Country: None (occurrence: None)
  Receive Date: 20110815
  Receipt Date: 20110801
  Transmission Date: 20111222
  Serious: Yes (Death, Other)
  Sender: FDA-Public Use
  Company Number: MC201100184

PATIENT
  Age: 89 Year
  Sex: Male
  Weight: 89.8 kg

DRUGS (4)
  1. ANGIOMAX [Suspect]
     Indication: MITRAL VALVE REPLACEMENT
     Dosage: 90 MG, BOLUS, INTRAVENOUS ; 2.5 MG/KG, HR, INTRAVENOUS
     Route: 042
     Dates: start: 20110415, end: 20110415
  2. ANGIOMAX [Suspect]
     Indication: AORTIC VALVE REPLACEMENT
     Dosage: 90 MG, BOLUS, INTRAVENOUS ; 2.5 MG/KG, HR, INTRAVENOUS
     Route: 042
     Dates: start: 20110415, end: 20110415
  3. ANGIOMAX [Suspect]
     Indication: MITRAL VALVE REPLACEMENT
     Dosage: 90 MG, BOLUS, INTRAVENOUS ; 2.5 MG/KG, HR, INTRAVENOUS
     Route: 042
     Dates: start: 20110415
  4. ANGIOMAX [Suspect]
     Indication: AORTIC VALVE REPLACEMENT
     Dosage: 90 MG, BOLUS, INTRAVENOUS ; 2.5 MG/KG, HR, INTRAVENOUS
     Route: 042
     Dates: start: 20110415

REACTIONS (5)
  - THROMBOSIS IN DEVICE [None]
  - OFF LABEL USE [None]
  - DRUG LEVEL INCREASED [None]
  - COAGULATION TIME PROLONGED [None]
  - POST PROCEDURAL HAEMORRHAGE [None]
